FAERS Safety Report 14746149 (Version 1)
Quarter: 2018Q2

REPORT INFORMATION
  Report Type: Report from Study
  Country: BE (occurrence: BE)
  Receive Date: 20180411
  Receipt Date: 20180411
  Transmission Date: 20180711
  Serious: Yes (Hospitalization)
  Sender: FDA-Public Use
  Company Number: BE-TEVA-2018-BE-879418

PATIENT
  Age: 77 Year
  Sex: Female

DRUGS (1)
  1. OLMESARTAN [Suspect]
     Active Substance: OLMESARTAN
     Indication: HYPERTENSION
     Dosage: THE PATIENT STARTED RECEIVING OLMESARTAN ABOUT 2 YEARS PRIOR TO THE HOSPITALISATION
     Route: 065

REACTIONS (4)
  - Sprue-like enteropathy [Recovered/Resolved]
  - Metabolic acidosis [Unknown]
  - Renal failure [Recovered/Resolved]
  - Electrolyte imbalance [Unknown]
